FAERS Safety Report 9907493 (Version 2)
Quarter: 2014Q1

REPORT INFORMATION
  Report Type: Spontaneous
  Country: US (occurrence: US)
  Receive Date: 20140218
  Receipt Date: 20140307
  Transmission Date: 20141002
  Serious: Yes (Death, Hospitalization)
  Sender: FDA-Public Use
  Company Number: US-BAXTER-2014BAX007566

PATIENT
  Sex: Male

DRUGS (6)
  1. DIANEAL LOW CALCIUM [Suspect]
     Indication: RENAL FAILURE CHRONIC
     Route: 033
     Dates: start: 201304
  2. DIANEAL LOW CALCIUM [Suspect]
     Indication: RENAL FAILURE CHRONIC
     Route: 033
     Dates: start: 201304
  3. ISOSORB [Concomitant]
     Indication: BLOOD PRESSURE
  4. ISOSORB [Concomitant]
  5. CARVEDILOL [Concomitant]
     Indication: BLOOD PRESSURE
  6. CARVEDILOL [Concomitant]

REACTIONS (3)
  - Death [Fatal]
  - Cardiac failure congestive [Recovering/Resolving]
  - Arthralgia [Not Recovered/Not Resolved]
